FAERS Safety Report 13782360 (Version 2)
Quarter: 2017Q3

REPORT INFORMATION
  Report Type: Spontaneous
  Country: US (occurrence: US)
  Receive Date: 20170724
  Receipt Date: 20170905
  Transmission Date: 20171127
  Serious: Yes (Other)
  Sender: FDA-Public Use
  Company Number: US-PFIZER INC-2017312320

PATIENT
  Age: 53 Year
  Sex: Female
  Weight: 82 kg

DRUGS (12)
  1. PROPRANOLOL [Concomitant]
     Active Substance: PROPRANOLOL HYDROCHLORIDE
     Dosage: 10 MG, UNK
     Route: 048
  2. PROZAC [Concomitant]
     Active Substance: FLUOXETINE HYDROCHLORIDE
     Indication: DEPRESSION
     Dosage: 30 MG, 1X/DAY
  3. MYORISAN [Suspect]
     Active Substance: ISOTRETINOIN
     Indication: ACNE
     Dosage: 40 MG, 1X/DAY
     Dates: start: 20170413, end: 20170430
  4. PROZAC [Concomitant]
     Active Substance: FLUOXETINE HYDROCHLORIDE
     Indication: ANXIETY
     Dosage: 30 MG, DAILY
     Route: 048
  5. SYNTHROID [Concomitant]
     Active Substance: LEVOTHYROXINE SODIUM
     Dosage: 100 UG, 1X/DAY
     Route: 048
  6. ADAPALENE. [Concomitant]
     Active Substance: ADAPALENE
     Dosage: UNK UNK, 1X/DAY (QHS)
     Route: 061
  7. BENZEPRO [Concomitant]
     Active Substance: BENZOYL PEROXIDE
     Dosage: UNK UNK, 1X/DAY (APPLY TOPICALLY AS A WASH EVERY MORNING FOLLOWED BY MOISTURIZER)
     Route: 061
  8. MYORISAN [Suspect]
     Active Substance: ISOTRETINOIN
     Dosage: 40 MG, UNK, (EVERY 3 DAYS-EVERY 72 HOURS)
     Dates: start: 20170511, end: 20170608
  9. HYLATOPICPLUS [Suspect]
     Active Substance: EMOLLIENTS
     Indication: ACNE
     Dosage: 40 MG, UNK, (AS DIRECTED)
     Route: 061
  10. ZENATANE [Concomitant]
     Active Substance: ISOTRETINOIN
     Dosage: 40 MG, 1X/DAY, (ONCE)
     Route: 048
  11. LUNESTA [Concomitant]
     Active Substance: ESZOPICLONE
     Indication: INSOMNIA
     Dosage: 30 MG, 1X/DAY, (EVERY NIGHT)
  12. LIPITOR [Suspect]
     Active Substance: ATORVASTATIN CALCIUM
     Dosage: 20 MG, UNK
     Route: 048

REACTIONS (12)
  - Diarrhoea [Unknown]
  - Arthralgia [Unknown]
  - Abdominal pain [Unknown]
  - Lipoma [Unknown]
  - Neoplasm skin [Unknown]
  - Depression [Recovered/Resolved]
  - Anxiety [Recovered/Resolved]
  - Headache [Recovered/Resolved]
  - Therapeutic response decreased [Unknown]
  - Lip exfoliation [Unknown]
  - Lip dry [Unknown]
  - Condition aggravated [Recovered/Resolved]

NARRATIVE: CASE EVENT DATE: 201704
